FAERS Safety Report 8982858 (Version 4)
Quarter: 2014Q2

REPORT INFORMATION
  Report Type: Report from Study
  Country: US (occurrence: US)
  Receive Date: 20121221
  Receipt Date: 20140512
  Transmission Date: 20141212
  Serious: Yes (Hospitalization)
  Sender: FDA-Public Use
  Company Number: US-US-EMD SERONO, INC.-7183077

PATIENT
  Age: 56 Year
  Sex: Female

DRUGS (5)
  1. REBIF [Suspect]
     Indication: PRODUCT USED FOR UNKNOWN INDICATION
     Route: 058
     Dates: start: 20101124, end: 201212
  2. REBIF [Suspect]
     Route: 058
     Dates: start: 20130701, end: 201403
  3. FLUOXETINE [Concomitant]
     Indication: PRODUCT USED FOR UNKNOWN INDICATION
  4. FLUOXETINE [Concomitant]
  5. ALEVE                              /00256202/ [Concomitant]
     Indication: PREMEDICATION

REACTIONS (7)
  - Wrist fracture [Recovering/Resolving]
  - Wrist fracture [Unknown]
  - Fall [Unknown]
  - Dizziness [Unknown]
  - Vertigo [Unknown]
  - Trigeminal neuralgia [Unknown]
  - Hemiparesis [Unknown]
